FAERS Safety Report 14831046 (Version 1)
Quarter: 2018Q2

REPORT INFORMATION
  Report Type: Report from Study
  Country: None (occurrence: AE)
  Receive Date: 20180430
  Receipt Date: 20180430
  Transmission Date: 20180711
  Serious: Yes (Other)
  Sender: FDA-Public Use
  Company Number: AE-ABBVIE-18K-166-2339606-00

PATIENT
  Age: 28 Year
  Sex: Female

DRUGS (1)
  1. HUMIRA [Suspect]
     Active Substance: ADALIMUMAB
     Indication: HIDRADENITIS
     Route: 058
     Dates: start: 20170810, end: 201804

REACTIONS (1)
  - Diaphragmatic hernia [Not Recovered/Not Resolved]

NARRATIVE: CASE EVENT DATE: 201804
